FAERS Safety Report 5266268-7 (Version None)
Quarter: 2007Q1

REPORT INFORMATION
  Report Type: 
  Country: None (occurrence: None)
  Receive Date: 20070315
  Receipt Date: 20070305
  Transmission Date: 20070707
  Serious: Yes (Hospitalization)
  Sender: FDA-Public Use
  Company Number: DE-MERCK-0609DEU00053

PATIENT
  Age: 83 Year
  Sex: Male
  Weight: 84 kg

DRUGS (10)
  1. ZOCOR [Suspect]
     Indication: HYPERLIPIDAEMIA
     Route: 048
     Dates: end: 20060801
  2. ZOCOR [Suspect]
     Indication: CORONARY ARTERY DISEASE
     Route: 048
     Dates: end: 20060801
  3. CLOPIDOGREL BISULFATE [Concomitant]
     Indication: PERIPHERAL ARTERIAL OCCLUSIVE DISEASE
     Route: 048
     Dates: end: 20060803
  4. ESOMEPRAZOLE MAGNESIUM [Concomitant]
     Indication: GASTRITIS
     Route: 048
  5. BENSERAZIDE HYDROCHLORIDE AND LEVODOPA [Concomitant]
     Indication: PARKINSON'S DISEASE
     Route: 048
  6. DIHYDROERGOCRYPTINE MESYLATE [Concomitant]
     Indication: PARKINSON'S DISEASE
     Route: 048
  7. POLYETHYLENE GLYCOL 3350 AND POTASSIUM CHLORIDE AND SODIUM BICARBONATE [Concomitant]
     Indication: CONSTIPATION
     Route: 048
  8. ENALAPRIL MALEATE [Concomitant]
     Indication: HYPERTENSION
     Route: 048
  9. QUETIAPINE FUMARATE [Concomitant]
     Indication: PARKINSON'S DISEASE
     Route: 048
     Dates: start: 20060802
  10. AMPICILLIN SODIUM AND SULBACTAM SODIUM [Concomitant]
     Indication: PNEUMONIA
     Route: 048
     Dates: start: 20060801

REACTIONS (3)
  - PARAPARESIS [None]
  - RENAL FAILURE [None]
  - RHABDOMYOLYSIS [None]
